FAERS Safety Report 8003396-7 (Version None)
Quarter: 2011Q4

REPORT INFORMATION
  Report Type: 
  Country: None (occurrence: None)
  Receive Date: 20111222
  Receipt Date: 20111219
  Transmission Date: 20120403
  Serious: Yes (Other)
  Sender: FDA-Public Use
  Company Number: US-US-EMD SERONO, INC.-7102554

PATIENT
  Sex: Female

DRUGS (1)
  1. REBIF [Suspect]
     Indication: PRODUCT USED FOR UNKNOWN INDICATION
     Route: 058
     Dates: start: 20110620

REACTIONS (13)
  - OPTIC NERVE DISORDER [None]
  - ABDOMINAL HERNIA [None]
  - INJECTION SITE ERYTHEMA [None]
  - FAECAL INCONTINENCE [None]
  - FEELING ABNORMAL [None]
  - INSOMNIA [None]
  - PAIN [None]
  - CHILLS [None]
  - INJECTION SITE PAIN [None]
  - PYREXIA [None]
  - FALL [None]
  - MUSCULAR WEAKNESS [None]
  - INJECTION SITE NODULE [None]
